FAERS Safety Report 8344282-2 (Version None)
Quarter: 2012Q2

REPORT INFORMATION
  Report Type: 
  Country: None (occurrence: None)
  Receive Date: 20120508
  Receipt Date: 20080925
  Transmission Date: 20120825
  Serious: Yes (Hospitalization)
  Sender: FDA-Public Use
  Company Number: US-TEVA-US024747

PATIENT
  Sex: Male

DRUGS (3)
  1. TREANDA [Suspect]
     Indication: NEOPLASM MALIGNANT
     Route: 042
  2. TREANDA [Suspect]
     Route: 042
     Dates: start: 20080924
  3. RITUXAN [Concomitant]
     Indication: NEOPLASM MALIGNANT
     Dates: start: 20080924

REACTIONS (2)
  - PYREXIA [None]
  - RASH [None]
